FAERS Safety Report 15350970 (Version 2)
Quarter: 2019Q1

REPORT INFORMATION
  Report Type: Spontaneous
  Country: NG (occurrence: NG)
  Receive Date: 20180905
  Receipt Date: 20190329
  Transmission Date: 20190417
  Serious: Yes (Death, Hospitalization)
  Sender: FDA-Public Use
  Company Number: NG-SUN PHARMACEUTICAL INDUSTRIES LTD-2018R1-183193

PATIENT
  Age: 55 Year
  Sex: Female

DRUGS (4)
  1. DOXORUBICIN [Suspect]
     Active Substance: DOXORUBICIN
     Indication: DEDIFFERENTIATED LIPOSARCOMA
     Route: 065
  2. DOXORUBICIN [Suspect]
     Active Substance: DOXORUBICIN
     Indication: CHEMOTHERAPY
  3. IFOSFAMIDE. [Suspect]
     Active Substance: IFOSFAMIDE
     Indication: DEDIFFERENTIATED LIPOSARCOMA
     Dosage: UNK
     Route: 065
  4. IFOSFAMIDE. [Suspect]
     Active Substance: IFOSFAMIDE
     Indication: CHEMOTHERAPY

REACTIONS (4)
  - Leukopenia [Unknown]
  - Depression [Unknown]
  - Pulmonary embolism [Fatal]
  - Anaemia [Unknown]
